FAERS Safety Report 15941342 (Version 1)
Quarter: 2019Q1

REPORT INFORMATION
  Report Type: Spontaneous
  Country: US (occurrence: US)
  Receive Date: 20190208
  Receipt Date: 20190208
  Transmission Date: 20190417
  Serious: No
  Sender: FDA-Public Use
  Company Number: NXG-15-023

PATIENT
  Age: 63 Year
  Sex: Female
  Weight: 72.73 kg

DRUGS (2)
  1. CHENODAL [Suspect]
     Active Substance: CHENODIOL
     Route: 048
     Dates: start: 20131116
  2. ANTIBIOTICS [Concomitant]
     Active Substance: UNSPECIFIED INGREDIENT

REACTIONS (3)
  - Bronchitis [Unknown]
  - Laryngitis [Unknown]
  - Pneumonia [Unknown]

NARRATIVE: CASE EVENT DATE: 20140629
